FAERS Safety Report 12159241 (Version 2)
Quarter: 2016Q2

REPORT INFORMATION
  Report Type: Spontaneous
  Country: JP (occurrence: JP)
  Receive Date: 20160308
  Receipt Date: 20160414
  Transmission Date: 20160815
  Serious: Yes (Hospitalization)
  Sender: FDA-Public Use
  Company Number: JP-ELI_LILLY_AND_COMPANY-JP201602002793

PATIENT
  Age: 91 Year
  Sex: Female
  Weight: 38.2 kg

DRUGS (8)
  1. ALFACALCIDOL [Concomitant]
     Active Substance: ALFACALCIDOL
     Indication: OSTEOPOROSIS
     Dosage: 1 UNK, UNK
     Route: 048
  2. VALSARTAN. [Concomitant]
     Active Substance: VALSARTAN
     Indication: HYPERTENSION
     Dosage: 40 MG, QD
     Route: 048
     Dates: start: 20160201, end: 20160202
  3. SELTEPNON [Concomitant]
     Active Substance: TEPRENONE
     Indication: GASTRITIS
     Dosage: 0.5 G, EACH MORNING
     Route: 048
  4. FORTEO [Suspect]
     Active Substance: TERIPARATIDE
     Indication: OSTEOPOROSIS
     Dosage: 20 UG, QD
     Route: 058
     Dates: start: 20160122, end: 20160131
  5. CRESTOR [Concomitant]
     Active Substance: ROSUVASTATIN CALCIUM
     Indication: HYPERLIPIDAEMIA
     Dosage: 2.5 MG, UNK
     Route: 048
  6. CANDESARTAN CILEXETIL. [Concomitant]
     Active Substance: CANDESARTAN CILEXETIL
     Indication: HYPERTENSION
     Dosage: 8 MG, EACH MORNING
     Route: 048
     Dates: end: 20160131
  7. HYPEN                              /00613801/ [Concomitant]
     Active Substance: ETODOLAC
     Dosage: 100 MG, BID
     Route: 048
  8. TOUGHMAC E [Concomitant]
     Active Substance: AMYLASE\LIPASE\PROTEASE
     Dosage: 1 DF, EACH MORNING
     Route: 048

REACTIONS (5)
  - Angina unstable [Recovering/Resolving]
  - Blood pressure decreased [Recovering/Resolving]
  - Malaise [Recovering/Resolving]
  - Feeling hot [Unknown]
  - Chest discomfort [Recovered/Resolved]

NARRATIVE: CASE EVENT DATE: 20160123
